FAERS Safety Report 12353915 (Version 1)
Quarter: 2016Q2

REPORT INFORMATION
  Report Type: Spontaneous
  Country: US (occurrence: US)
  Receive Date: 20160511
  Receipt Date: 20160511
  Transmission Date: 20160815
  Serious: Yes (Other)
  Sender: FDA-Public Use
  Company Number: US-JNJCP-30000335891

PATIENT
  Sex: Female

DRUGS (1)
  1. AVEENO ECZEMA THERAPY MOISTURIZING [Suspect]
     Active Substance: OATMEAL
     Indication: PRODUCT USED FOR UNKNOWN INDICATION
     Dosage: EVERYDAY FOR THE PAST 10 YEARS
     Route: 061

REACTIONS (1)
  - Neoplasm skin [Not Recovered/Not Resolved]

NARRATIVE: CASE EVENT DATE: 201604
